FAERS Safety Report 5959531-5 (Version None)
Quarter: 2008Q4

REPORT INFORMATION
  Report Type: 
  Country: None (occurrence: None)
  Receive Date: 20081118
  Receipt Date: 20081103
  Transmission Date: 20090506
  Serious: Yes (Hospitalization)
  Sender: FDA-Public Use
  Company Number: 2008S1019727

PATIENT
  Age: 56 Year
  Sex: Female

DRUGS (5)
  1. NIMESULIDE (NIMESULIDE) [Suspect]
  2. PREDNISONE [Suspect]
  3. KLIOGEST (TRISEKVENS /00441501/) [Suspect]
  4. LEVOTHYROXINE SODIUM [Suspect]
  5. BETAHISTINE (BETAHISTINE) [Suspect]

REACTIONS (3)
  - ACUTE HEPATIC FAILURE [None]
  - HEPATOTOXICITY [None]
  - LIVER TRANSPLANT [None]
